FAERS Safety Report 19456194 (Version 1)
Quarter: 2021Q2

REPORT INFORMATION
  Report Type: Spontaneous
  Country: US (occurrence: US)
  Receive Date: 20210624
  Receipt Date: 20210624
  Transmission Date: 20210717
  Serious: Yes (Hospitalization)
  Sender: FDA-Public Use
  Company Number: None

PATIENT
  Age: 81 Year
  Sex: Female
  Weight: 65.77 kg

DRUGS (8)
  1. PROCHLORPERAZINE. [Concomitant]
     Active Substance: PROCHLORPERAZINE
  2. ZOFRAN [Concomitant]
     Active Substance: ONDANSETRON HYDROCHLORIDE
  3. SUCRALFATE. [Concomitant]
     Active Substance: SUCRALFATE
  4. TIMOPTIC [Concomitant]
     Active Substance: TIMOLOL MALEATE
  5. EZETEMIBE [Concomitant]
     Active Substance: EZETIMIBE
  6. LIVALO [Concomitant]
     Active Substance: PITAVASTATIN CALCIUM
  7. LATANOPROST. [Concomitant]
     Active Substance: LATANOPROST
  8. CAPECITABINE. [Suspect]
     Active Substance: CAPECITABINE
     Indication: NEOPLASM MALIGNANT
     Route: 048
     Dates: start: 20210511, end: 20210610

REACTIONS (2)
  - Diarrhoea [None]
  - Dehydration [None]

NARRATIVE: CASE EVENT DATE: 20210610
